FAERS Safety Report 11796320 (Version 2)
Quarter: 2016Q1

REPORT INFORMATION
  Report Type: Spontaneous
  Country: US (occurrence: US)
  Receive Date: 20151203
  Receipt Date: 20160122
  Transmission Date: 20160525
  Serious: No
  Sender: FDA-Public Use
  Company Number: US-PFIZER INC-2015404642

PATIENT
  Sex: Male

DRUGS (1)
  1. DEPO-TESTOSTERONE [Suspect]
     Active Substance: TESTOSTERONE CYPIONATE
     Dosage: 0.5 ML, WEEKLY (200MG/ML 1CC VIAL WEEKLY)
     Route: 030

REACTIONS (4)
  - Reaction to drug excipients [Unknown]
  - Injection site urticaria [Unknown]
  - Injection site discomfort [Unknown]
  - Intentional product misuse [Unknown]
